FAERS Safety Report 7727790-4 (Version None)
Quarter: 2011Q3

REPORT INFORMATION
  Report Type: 
  Country: None (occurrence: None)
  Receive Date: 20110905
  Receipt Date: 20110826
  Transmission Date: 20111222
  Serious: Yes (Hospitalization)
  Sender: FDA-Public Use
  Company Number: FR-BRISTOL-MYERS SQUIBB COMPANY-16012551

PATIENT
  Age: 22 Year
  Sex: Female

DRUGS (10)
  1. ESCITALOPRAM OXALATE [Concomitant]
     Dosage: 7JUN-10JUN: 5 MG/D THEN 30 MG SINCE 15JUN,3 TABLETS IN THE MORNING,
     Route: 048
     Dates: start: 20110607
  2. LYRICA [Concomitant]
     Dosage: 1DF=LYRICA 75 MG TABLET
  3. FORLAX [Concomitant]
     Dosage: 1DF=2 SACHETS IN THE MORNING
  4. ABILIFY [Suspect]
     Dosage: 1 TABLET IN THE MORNING SINCE 15JUN11 2/D THEN 1/D SINCE 20JUN11 THEN INCREASED TO 30MG
     Route: 048
     Dates: start: 20110615
  5. TRAMADOL HCL [Concomitant]
     Dosage: : 1 TABLET MORNING AND EVENING
     Route: 048
     Dates: start: 20110621
  6. LOVENOX [Concomitant]
     Dosage: 1DF= 1 AMPOULE IN THE EVENING, LOVENOX 200 IU/0.2 ML
  7. ZYPREXA [Suspect]
     Indication: SCHIZOPHRENIA
     Dosage: DOSE REDUCED,2 TABLETS IN THE EVENING
     Route: 048
     Dates: start: 20110620
  8. MIRTAZAPINE [Suspect]
     Dosage: DOSAGE ADJUSTEMENT AND SINCE 26-JUL INTAKE OF 2 TABLETS /D
     Route: 048
     Dates: start: 20110607, end: 20110803
  9. ACUPAN [Concomitant]
     Dosage: 1DF=1 AMPOULE .ACUPAN 20 MG
  10. ACETAMINOPHEN [Concomitant]

REACTIONS (1)
  - HEPATITIS CHOLESTATIC [None]
